FAERS Safety Report 19960516 (Version 2)
Quarter: 2021Q4

REPORT INFORMATION
  Report Type: Spontaneous
  Country: AU (occurrence: AU)
  Receive Date: 20211015
  Receipt Date: 20211028
  Transmission Date: 20220303
  Serious: Yes (Hospitalization)
  Sender: FDA-Public Use
  Company Number: AU-VERTEX PHARMACEUTICALS-2021-015824

PATIENT
  Age: 6 Year
  Sex: Female
  Weight: 24.1 kg

DRUGS (17)
  1. ORKAMBI [Suspect]
     Active Substance: IVACAFTOR\LUMACAFTOR
     Indication: Cystic fibrosis
     Dosage: 2 TABLETS (100MG/125 MG), BID
     Route: 048
     Dates: start: 202001
  2. ORKAMBI [Suspect]
     Active Substance: IVACAFTOR\LUMACAFTOR
     Dosage: 1 TABLET (100MG/125 MG) DAILY
     Route: 048
     Dates: start: 202010
  3. POSACONAZOLE [Suspect]
     Active Substance: POSACONAZOLE
     Indication: Product used for unknown indication
     Dosage: UNK
     Route: 065
     Dates: start: 20201007
  4. INTRAGAM P [Suspect]
     Active Substance: HUMAN IMMUNOGLOBULIN G
     Indication: Product used for unknown indication
     Route: 065
  5. TOBRAMYCIN [Suspect]
     Active Substance: TOBRAMYCIN
     Indication: Product used for unknown indication
     Route: 042
  6. PIPERACILLIN SODIUM\TAZOBACTAM SODIUM [Suspect]
     Active Substance: PIPERACILLIN SODIUM\TAZOBACTAM SODIUM
     Indication: Product used for unknown indication
     Route: 042
  7. SODIUM CHLORIDE [Concomitant]
     Active Substance: SODIUM CHLORIDE
     Dosage: 6% NEBULISED BD WITH PHYSIOTHERAPY
  8. SALT [Concomitant]
     Active Substance: SODIUM CHLORIDE
     Dosage: 600 MG TABLETS, 06 PER DAY
  9. PULMOZYME [Concomitant]
     Active Substance: DORNASE ALFA
     Dosage: 2.5MG INH NOCTE
  10. URSODIOL [Concomitant]
     Active Substance: URSODIOL
     Dosage: 125 MG, BID
  11. OMEPRAZOLE [Concomitant]
     Active Substance: OMEPRAZOLE
     Dosage: 10 MG, QD
  12. SERETIDE [Concomitant]
     Active Substance: FLUTICASONE PROPIONATE\SALMETEROL XINAFOATE
     Dosage: 125/25 2 INHALATIONS BD
  13. MEROPENEM [Concomitant]
     Active Substance: MEROPENEM
  14. AUGMENTIN [Concomitant]
     Active Substance: AMOXICILLIN\CLAVULANATE POTASSIUM
  15. MEPOLIZUMAB [Concomitant]
     Active Substance: MEPOLIZUMAB
     Dosage: FOR 6 MONTHS
     Dates: start: 20201028
  16. CLONIDINE [Concomitant]
     Active Substance: CLONIDINE
     Indication: Renal impairment
  17. IRBESARTAN [Concomitant]
     Active Substance: IRBESARTAN

REACTIONS (9)
  - Infective pulmonary exacerbation of cystic fibrosis [Unknown]
  - Urticaria [Recovered/Resolved]
  - Cystic fibrosis lung [Not Recovered/Not Resolved]
  - Hepatic enzyme increased [Recovering/Resolving]
  - Emotional disorder [Not Recovered/Not Resolved]
  - Hypertension [Recovering/Resolving]
  - Renal impairment [Recovering/Resolving]
  - Blood immunoglobulin G decreased [Unknown]
  - Bronchopulmonary aspergillosis allergic [Not Recovered/Not Resolved]

NARRATIVE: CASE EVENT DATE: 20200101
